FAERS Safety Report 11364202 (Version 2)
Quarter: 2015Q3

REPORT INFORMATION
  Report Type: Report from Study
  Country: DE (occurrence: DE)
  Receive Date: 20150811
  Receipt Date: 20150918
  Transmission Date: 20151125
  Serious: Yes (Hospitalization, Other)
  Sender: FDA-Public Use
  Company Number: PHHY2015DE095847

PATIENT
  Sex: Female
  Weight: 70 kg

DRUGS (1)
  1. GILENYA [Suspect]
     Active Substance: FINGOLIMOD HYDROCHLORIDE
     Indication: RELAPSING-REMITTING MULTIPLE SCLEROSIS
     Dosage: 0.5 MG, QD
     Route: 065
     Dates: start: 20140401, end: 201508

REACTIONS (11)
  - Gait disturbance [Not Recovered/Not Resolved]
  - Blood brain barrier defect [Unknown]
  - Demyelination [Unknown]
  - Multiple sclerosis relapse [Unknown]
  - Ataxia [Unknown]
  - White blood cells urine positive [Unknown]
  - Varicella virus test positive [Unknown]
  - Central nervous system lesion [Not Recovered/Not Resolved]
  - Encephalitis [Unknown]
  - Protein total increased [Unknown]
  - Measles antibody positive [Unknown]

NARRATIVE: CASE EVENT DATE: 201508
